FAERS Safety Report 10143356 (Version 1)
Quarter: 2014Q2

REPORT INFORMATION
  Report Type: Spontaneous
  Country: US (occurrence: None)
  Receive Date: 20140429
  Receipt Date: 20140429
  Transmission Date: 20141212
  Serious: Yes (Hospitalization)
  Sender: FDA-Public Use
  Company Number: None

PATIENT
  Age: 87 Year
  Sex: Male
  Weight: 85.7 kg

DRUGS (1)
  1. ISONIAZID [Suspect]
     Indication: LATENT TUBERCULOSIS
     Route: 048
     Dates: start: 20140210, end: 20140424

REACTIONS (4)
  - Fatigue [None]
  - Asthenia [None]
  - Bone marrow failure [None]
  - Transaminases increased [None]
